FAERS Safety Report 6015329-3 (Version None)
Quarter: 2008Q4

REPORT INFORMATION
  Report Type: 
  Country: None (occurrence: None)
  Receive Date: 20081222
  Receipt Date: 20081210
  Transmission Date: 20090506
  Serious: Yes (Hospitalization, Other)
  Sender: FDA-Public Use
  Company Number: US-PFIZER INC-2008096458

PATIENT
  Age: 47 Year
  Sex: Female
  Weight: 69.841 kg

DRUGS (3)
  1. ZITHROMAX [Suspect]
     Indication: OTITIS MEDIA
     Dosage: 500 MG, 1X/DAY
     Route: 048
     Dates: start: 20080305, end: 20080307
  2. PLAVIX [Concomitant]
     Dosage: 75 MG, 1X/DAY
  3. ASPIRIN [Concomitant]
     Dosage: 325 MG, 1X/DAY

REACTIONS (1)
  - PROCTITIS ULCERATIVE [None]
